FAERS Safety Report 17181555 (Version 1)
Quarter: 2019Q4

REPORT INFORMATION
  Report Type: Spontaneous
  Country: US (occurrence: US)
  Receive Date: 20191219
  Receipt Date: 20191219
  Transmission Date: 20200122
  Serious: No
  Sender: FDA-Public Use
  Company Number: US-009507513-1912USA002268

PATIENT
  Sex: Female

DRUGS (1)
  1. MAXALT [Suspect]
     Active Substance: RIZATRIPTAN BENZOATE
     Indication: MIGRAINE
     Dosage: ONE A DAY
     Route: 060

REACTIONS (3)
  - Therapeutic response delayed [Recovered/Resolved]
  - Drug ineffective [Recovered/Resolved]
  - Incorrect route of product administration [Unknown]
